FAERS Safety Report 7315322-4 (Version None)
Quarter: 2011Q1

REPORT INFORMATION
  Report Type: 
  Country: None (occurrence: None)
  Receive Date: 20110225
  Receipt Date: 20110222
  Transmission Date: 20110831
  Serious: Yes (Life-Threatening, Hospitalization)
  Sender: FDA-Public Use
  Company Number: PHHY2011US03997

PATIENT
  Sex: Male
  Weight: 115.19 kg

DRUGS (1)
  1. EXJADE [Suspect]
     Indication: HAEMOLYTIC ANAEMIA
     Dosage: 2500 MG, DAILY
     Route: 048
     Dates: start: 20090915, end: 20110113

REACTIONS (6)
  - HYPOXIA [None]
  - AMNESIA [None]
  - UNRESPONSIVE TO STIMULI [None]
  - HEART RATE INCREASED [None]
  - OXYGEN SATURATION DECREASED [None]
  - CONFUSIONAL STATE [None]
